FAERS Safety Report 5682420-0 (Version None)
Quarter: 2008Q1

REPORT INFORMATION
  Report Type: 
  Country: None (occurrence: None)
  Receive Date: 20080327
  Receipt Date: 20070611
  Transmission Date: 20080703
  Serious: No
  Sender: FDA-Public Use
  Company Number: US-BAUSCH-2007BL001980

PATIENT
  Age: 84 Year
  Sex: Female

DRUGS (2)
  1. ALBUTEROL SULFATE [Suspect]
     Indication: ASTHMA
     Route: 049
     Dates: start: 20070101, end: 20070611
  2. PREDNISONE TAB [Concomitant]
     Indication: ASTHMA
     Route: 048

REACTIONS (2)
  - FATIGUE [None]
  - MEDICATION ERROR [None]
